FAERS Safety Report 7350247-X (Version None)
Quarter: 2011Q1

REPORT INFORMATION
  Report Type: 
  Country: None (occurrence: None)
  Receive Date: 20110314
  Receipt Date: 20110307
  Transmission Date: 20110831
  Serious: Yes (Hospitalization)
  Sender: FDA-Public Use
  Company Number: US-US-EMD SERONO, INC.-7014021

PATIENT
  Sex: Male
  Weight: 74 kg

DRUGS (4)
  1. UNSPECIFIED MEDICATION [Concomitant]
     Indication: HYPERTENSION
  2. UNSPECIFIED MEDICATION [Concomitant]
     Indication: BLOOD CHOLESTEROL INCREASED
  3. REBIF [Suspect]
     Indication: MULTIPLE SCLEROSIS
     Route: 058
     Dates: start: 20090223
  4. REBIF [Suspect]
     Route: 058

REACTIONS (10)
  - RENAL FAILURE [None]
  - PROSTATE CANCER [None]
  - PERIPHERAL ARTERY ANEURYSM [None]
  - AORTIC ANEURYSM [None]
  - ENTEROCOCCAL INFECTION [None]
  - PROTEUS INFECTION [None]
  - UROSEPSIS [None]
  - URINARY INCONTINENCE [None]
  - URETERIC INJURY [None]
  - ESCHERICHIA URINARY TRACT INFECTION [None]
